FAERS Safety Report 23623364 (Version 1)
Quarter: 2024Q1

REPORT INFORMATION
  Report Type: Spontaneous
  Country: US (occurrence: US)
  Receive Date: 20240312
  Receipt Date: 20240312
  Transmission Date: 20240409
  Serious: No
  Sender: FDA-Public Use
  Company Number: US-MYLANLABS-2024M1019290

PATIENT
  Age: 82 Year
  Sex: Female
  Weight: 54.43 kg

DRUGS (4)
  1. TYRVAYA [Suspect]
     Active Substance: VARENICLINE TARTRATE
     Indication: Dry eye
     Dosage: UNK
     Dates: start: 20240226, end: 20240226
  2. CYSTEINE [Concomitant]
     Active Substance: CYSTEINE
     Indication: Hypersensitivity
     Dosage: UNK
     Route: 065
  3. PATADAY [Concomitant]
     Active Substance: OLOPATADINE HYDROCHLORIDE
     Dosage: UNK
     Route: 065
  4. IVIZIA DRY EYE [Concomitant]
     Active Substance: POVIDONE
     Dosage: UNK
     Route: 065

REACTIONS (1)
  - Migraine [Not Recovered/Not Resolved]

NARRATIVE: CASE EVENT DATE: 20240226
